FAERS Safety Report 5308805-X (Version None)
Quarter: 2007Q2

REPORT INFORMATION
  Report Type: 
  Country: None (occurrence: None)
  Receive Date: 20070426
  Receipt Date: 20070416
  Transmission Date: 20071010
  Serious: Yes (Disabling, Other)
  Sender: FDA-Public Use
  Company Number: 2007AP02311

PATIENT
  Age: 29 Year
  Sex: Male

DRUGS (4)
  1. XYLOCAINE [Suspect]
     Indication: ANAESTHESIA
     Route: 037
     Dates: start: 20070412, end: 20070412
  2. ANAPEINE [Suspect]
     Indication: ANAESTHESIA
     Route: 037
     Dates: start: 20070412, end: 20070412
  3. DIPRIVAN [Concomitant]
     Route: 042
     Dates: start: 20070412, end: 20070412
  4. FENTANYL [Concomitant]
     Dates: start: 20070412, end: 20070412

REACTIONS (3)
  - DRUG ADMINISTRATION ERROR [None]
  - SPINAL ANAESTHESIA [None]
  - SPINAL CORD INFARCTION [None]
